FAERS Safety Report 4320440-9 (Version None)
Quarter: 2004Q1

REPORT INFORMATION
  Report Type: 
  Country: None (occurrence: None)
  Receive Date: 20040319
  Receipt Date: 20040319
  Transmission Date: 20041129
  Serious: Yes (Death)
  Sender: FDA-Public Use
  Company Number: None

PATIENT
  Sex: Female
  Weight: 121.564 kg

DRUGS (1)
  1. PROPULSID [Suspect]
     Indication: IMPAIRED GASTRIC EMPTYING
     Dosage: 20 MG TID
     Dates: start: 19940301, end: 20040301

REACTIONS (6)
  - CARDIAC FAILURE CONGESTIVE [None]
  - CONDUCTION DISORDER [None]
  - DIABETES MELLITUS [None]
  - METABOLIC ACIDOSIS [None]
  - RENAL FAILURE [None]
  - RESPIRATORY FAILURE [None]
